FAERS Safety Report 4647578-0 (Version None)
Quarter: 2005Q2

REPORT INFORMATION
  Report Type: 
  Country: None (occurrence: None)
  Receive Date: 20050426
  Receipt Date: 20050411
  Transmission Date: 20051028
  Serious: Yes (Hospitalization)
  Sender: FDA-Public Use
  Company Number: CIP05000887

PATIENT
  Age: 4 Year
  Sex: Male

DRUGS (13)
  1. DANTRIUM [Suspect]
     Dosage: 5 MG DAILY, ORAL
     Route: 048
     Dates: start: 20041117, end: 20050405
  2. PANVITAN (VITAMIN NOS) [Concomitant]
  3. CALCIUM LACTATE (CALCIUM LACTATE) [Concomitant]
  4. MILLACT (TILACTASE) [Concomitant]
  5. LAC B (LACTOBACILLUS BIFIDUS, LYOPHILIZED) [Concomitant]
  6. DEPAKENE [Concomitant]
  7. TRICORYL (TRICLOFOS SODIUM) [Concomitant]
  8. DIAZEPAM [Concomitant]
  9. BISOLVON (BROMHEXINE HYDROCHLORIDE) [Concomitant]
  10. MUCODYNE (CARBOCISTEINE) [Concomitant]
  11. DIAZEPAM [Concomitant]
  12. CARBAMAZEPINE [Concomitant]
  13. ADEROXAL (PYRIDOXAL PHOSPHATE) [Concomitant]

REACTIONS (2)
  - HAEMATOCHEZIA [None]
  - INFLAMMATORY BOWEL DISEASE [None]
